FAERS Safety Report 6450062-5 (Version None)
Quarter: 2009Q4

REPORT INFORMATION
  Report Type: 
  Country: None (occurrence: None)
  Receive Date: 20091123
  Receipt Date: 20091113
  Transmission Date: 20100525
  Serious: Yes (Hospitalization)
  Sender: FDA-Public Use
  Company Number: US-ELI_LILLY_AND_COMPANY-US200911003630

PATIENT
  Sex: Female

DRUGS (3)
  1. HUMATROPE [Suspect]
     Indication: GROWTH HORMONE DEFICIENCY
     Dosage: 0.2 MG, DAILY (1/D)
     Dates: start: 20090201, end: 20090821
  2. TYLENOL                                 /SCH/ [Concomitant]
     Dosage: UNK, UNKNOWN
  3. IBUPROFEN [Concomitant]
     Dosage: UNK, UNKNOWN

REACTIONS (1)
  - HIP ARTHROPLASTY [None]
